FAERS Safety Report 7055288-8 (Version None)
Quarter: 2010Q4

REPORT INFORMATION
  Report Type: 
  Country: None (occurrence: None)
  Receive Date: 20101020
  Receipt Date: 20101020
  Transmission Date: 20110411
  Serious: Yes (Life-Threatening)
  Sender: FDA-Public Use
  Company Number: None

PATIENT
  Sex: Male
  Weight: 72.5755 kg

DRUGS (2)
  1. ZYCLARA [Suspect]
     Indication: ACTINIC KERATOSIS
     Dosage: 1/DAY (0.25 GM/PACK  CREAM PACKET) FOREHEAD + TEMPLES
     Dates: start: 20100915, end: 20100918
  2. ALDARA [Suspect]
     Indication: ACTINIC KERATOSIS
     Dosage: 1/DAY (0.25 GM/PACK CREAM PACKET) FOREHEAD + TEMPLES
     Dates: start: 20100919, end: 20100922

REACTIONS (4)
  - FATIGUE [None]
  - INFLUENZA LIKE ILLNESS [None]
  - NAUSEA [None]
  - SKIN REACTION [None]
